FAERS Safety Report 9730547 (Version 2)
Quarter: 2013Q4

REPORT INFORMATION
  Report Type: Spontaneous
  Country: US (occurrence: US)
  Receive Date: 20131202
  Receipt Date: 20131202
  Transmission Date: 20140711
  Serious: No
  Sender: FDA-Public Use
  Company Number: US-AMGEN-USASP2013071895

PATIENT
  Age: 62 Year
  Sex: Female
  Weight: 83.9 kg

DRUGS (6)
  1. ENBREL [Suspect]
     Indication: RHEUMATOID ARTHRITIS
     Dosage: UNK
     Route: 065
  2. ORENCIA [Suspect]
     Indication: PRODUCT USED FOR UNKNOWN INDICATION
     Dosage: UNK
     Route: 065
  3. HUMIRA [Suspect]
     Indication: PRODUCT USED FOR UNKNOWN INDICATION
     Dosage: UNK
     Route: 065
  4. METFORMIN [Concomitant]
     Indication: DIABETES MELLITUS
     Dosage: 500 MG, QD
  5. NORVASC [Concomitant]
     Indication: HYPERTENSION
     Dosage: 25 MG, QD
  6. MONTELUKAST SODIUM [Concomitant]
     Indication: ASTHMA
     Dosage: UNK

REACTIONS (3)
  - Therapeutic response decreased [Unknown]
  - Adverse event [Unknown]
  - White blood cell count decreased [Recovered/Resolved]
